FAERS Safety Report 5125797-7 (Version None)
Quarter: 2006Q4

REPORT INFORMATION
  Report Type: 
  Country: None (occurrence: None)
  Receive Date: 20061012
  Receipt Date: 20060914
  Transmission Date: 20070319
  Serious: Yes (Life-Threatening, Hospitalization)
  Sender: FDA-Public Use
  Company Number: DE-BRACCO-BRO-010557

PATIENT
  Sex: Female

DRUGS (2)
  1. PROHANCE [Suspect]
     Indication: BREAST MASS
     Route: 042
     Dates: start: 20060911, end: 20060911
  2. PROHANCE [Suspect]
     Route: 042
     Dates: start: 20060911, end: 20060911

REACTIONS (1)
  - HYPERSENSITIVITY [None]
